FAERS Safety Report 21085639 (Version 1)
Quarter: 2022Q3

REPORT INFORMATION
  Report Type: Spontaneous
  Country: US (occurrence: US)
  Receive Date: 20220715
  Receipt Date: 20220715
  Transmission Date: 20221027
  Serious: Yes (Hospitalization)
  Sender: FDA-Public Use
  Company Number: US-STRIDES ARCOLAB LIMITED-2022SP000919

PATIENT
  Age: 56 Year
  Sex: Male

DRUGS (6)
  1. NYSTATIN [Suspect]
     Active Substance: NYSTATIN
     Indication: Mucosal ulceration
     Dosage: UNK, OINTMENT
     Route: 061
     Dates: start: 2021
  2. DIPHENHYDRAMINE [Suspect]
     Active Substance: DIPHENHYDRAMINE
     Indication: Mucosal ulceration
     Dosage: UNK, ORAL RINSE
     Route: 048
     Dates: start: 2021
  3. FILGRASTIM [Suspect]
     Active Substance: FILGRASTIM
     Indication: Mucosal ulceration
     Dosage: UNK
     Route: 065
     Dates: start: 2021
  4. LIDOCAINE [Suspect]
     Active Substance: LIDOCAINE
     Indication: Mucosal ulceration
     Dosage: UNK, ORAL RINSE
     Route: 048
     Dates: start: 2021
  5. NITROGLYCERIN [Suspect]
     Active Substance: NITROGLYCERIN
     Indication: Mucosal ulceration
     Dosage: UNK
     Route: 061
     Dates: start: 2021
  6. VORICONAZOLE [Concomitant]
     Active Substance: VORICONAZOLE
     Indication: Antifungal prophylaxis
     Dosage: UNK
     Route: 065
     Dates: start: 202101

REACTIONS (1)
  - Drug ineffective [Unknown]

NARRATIVE: CASE EVENT DATE: 20210101
